FAERS Safety Report 7558594-3 (Version None)
Quarter: 2011Q2

REPORT INFORMATION
  Report Type: 
  Country: None (occurrence: None)
  Receive Date: 20110621
  Receipt Date: 20110613
  Transmission Date: 20111010
  Serious: Yes (Hospitalization, Other)
  Sender: FDA-Public Use
  Company Number: US-BIOGENIDEC-2010BI045222

PATIENT
  Age: 47 Year
  Sex: Male
  Weight: 92 kg

DRUGS (8)
  1. LYRICA [Concomitant]
     Indication: PAIN
     Route: 048
  2. METFORMIN HCL [Concomitant]
     Route: 048
  3. LEVOTHYROXINE SODIUM [Concomitant]
     Route: 048
  4. MAGNESIUM GLYCINATE [Concomitant]
     Route: 048
  5. AVONEX [Suspect]
     Route: 030
     Dates: start: 19971201
  6. MELOXICAM [Concomitant]
     Indication: PAIN
     Route: 048
  7. AVONEX [Suspect]
     Indication: MULTIPLE SCLEROSIS
     Route: 030
  8. AVONEX [Suspect]
     Route: 030

REACTIONS (6)
  - RESPIRATORY ARREST [None]
  - GRAND MAL CONVULSION [None]
  - COMA [None]
  - CONVULSION [None]
  - NASOPHARYNGITIS [None]
  - BLADDER DISORDER [None]
